FAERS Safety Report 7232932-3 (Version None)
Quarter: 2011Q1

REPORT INFORMATION
  Report Type: 
  Country: None (occurrence: None)
  Receive Date: 20110119
  Receipt Date: 20110117
  Transmission Date: 20110831
  Serious: Yes (Life-Threatening, Hospitalization, Other)
  Sender: FDA-Public Use
  Company Number: PHHO2010AU18302

PATIENT
  Sex: Female

DRUGS (1)
  1. AMN107 [Suspect]
     Indication: CHRONIC MYELOID LEUKAEMIA
     Dosage: 800 MG, DAILY
     Route: 048
     Dates: start: 20091025

REACTIONS (13)
  - BRAIN OEDEMA [None]
  - SOMNOLENCE [None]
  - CEREBRAL INFARCTION [None]
  - ELECTROLYTE IMBALANCE [None]
  - LIVER FUNCTION TEST ABNORMAL [None]
  - HAEMATOMA [None]
  - VIITH NERVE PARALYSIS [None]
  - HAEMOGLOBIN DECREASED [None]
  - HYPERTENSION [None]
  - THROMBOSIS [None]
  - HEADACHE [None]
  - DYSARTHRIA [None]
  - POLYURIA [None]
